FAERS Safety Report 9782384 (Version 1)
Quarter: 2013Q4

REPORT INFORMATION
  Report Type: Report from Study
  Country: MX (occurrence: MX)
  Receive Date: 20131226
  Receipt Date: 20131226
  Transmission Date: 20140711
  Serious: Yes (Hospitalization, Other)
  Sender: FDA-Public Use
  Company Number: PHHY2013MX150465

PATIENT
  Age: 53 Year
  Sex: Female
  Weight: 56 kg

DRUGS (4)
  1. GALVUS MET [Suspect]
     Indication: DIABETES MELLITUS
     Dosage: 1 DF (METF 850MG, VILD 50MG) DAILY
     Route: 048
     Dates: start: 2010
  2. ACLASTA [Suspect]
     Indication: OSTEOPENIA
     Dosage: 5/100MG/ML, DAILY
     Dates: start: 20121218
  3. NUCLEO CMP FORTE [Concomitant]
     Indication: TENDON DISORDER
     Dosage: 2 DF (CYTI 5MG, URID 3MG) DAILY
     Route: 048
     Dates: start: 201303
  4. EUTIROX [Concomitant]
     Indication: HYPERTHYROIDISM
     Dosage: 125 MG, DAILY
     Dates: start: 1988

REACTIONS (8)
  - Fall [Recovered/Resolved]
  - Spinal fracture [Not Recovered/Not Resolved]
  - Bacterial infection [Recovered/Resolved]
  - Loss of consciousness [Recovered/Resolved]
  - Weight decreased [Not Recovered/Not Resolved]
  - Pyrexia [Recovered/Resolved]
  - Vomiting [Recovered/Resolved]
  - Procedural pain [Unknown]
